FAERS Safety Report 4421487-4 (Version None)
Quarter: 2004Q3

REPORT INFORMATION
  Report Type: 
  Country: None (occurrence: None)
  Receive Date: 20040712
  Receipt Date: 20040426
  Transmission Date: 20050211
  Serious: No
  Sender: FDA-Public Use
  Company Number: 2004-05-1476

PATIENT
  Age: 57 Year
  Sex: Female

DRUGS (3)
  1. CLARINEX [Suspect]
     Indication: COUGH
     Dosage: ORAL
     Route: 048
  2. CLARINEX [Suspect]
     Indication: NASAL CONGESTION
     Dosage: ORAL
     Route: 048
  3. CLARINEX [Suspect]
     Indication: POSTNASAL DRIP
     Dosage: ORAL
     Route: 048

REACTIONS (2)
  - DRUG INEFFECTIVE [None]
  - INSOMNIA [None]
